FAERS Safety Report 5503998-3 (Version None)
Quarter: 2007Q4

REPORT INFORMATION
  Report Type: 
  Country: None (occurrence: None)
  Receive Date: 20071101
  Receipt Date: 20071023
  Transmission Date: 20080405
  Serious: Yes (Hospitalization, Other)
  Sender: FDA-Public Use
  Company Number: DE-ROCHE-512154

PATIENT
  Age: 42 Year
  Sex: Female
  Weight: 58.7 kg

DRUGS (8)
  1. PEGASYS [Suspect]
     Indication: HEPATITIS C
     Dosage: INDICATION REPORTED AS: HEPATITIS C, GENOTYPE 1B
     Route: 058
     Dates: start: 20060801, end: 20070401
  2. COPEGUS [Suspect]
     Indication: HEPATITIS C
     Dosage: INDICATION REPORTED AS: HEPATITIS C, GENOTYPE 1B
     Route: 048
     Dates: start: 20060801, end: 20070401
  3. ALDACTONE [Concomitant]
     Indication: HEPATIC FAILURE
     Dates: start: 20070501, end: 20070701
  4. AQUAPHOR [Concomitant]
     Indication: HEPATIC FAILURE
     Dates: start: 20070501, end: 20070701
  5. CALCIMAGON [Concomitant]
     Dates: start: 20070701, end: 20071001
  6. KONAKION [Concomitant]
     Dosage: INDICATION REPORTED AS QUICK DECREASE 38%
     Dates: start: 20070601, end: 20070801
  7. PREDNISOLON [Concomitant]
     Indication: AUTOIMMUNE HEPATITIS
     Dosage: DOSAGE ALSO REPORTED AS: ACTUALLY 2.5 MG DAILY
     Dates: start: 20060601, end: 20071001
  8. PANTOPRAZOLE SODIUM [Concomitant]
     Dates: start: 20070601, end: 20071001

REACTIONS (3)
  - AUTOIMMUNE HEPATITIS [None]
  - FIBROSIS [None]
  - HEPATIC FAILURE [None]
